FAERS Safety Report 13085498 (Version 1)
Quarter: 2017Q1

REPORT INFORMATION
  Report Type: Spontaneous
  Country: US (occurrence: US)
  Receive Date: 20170103
  Receipt Date: 20170103
  Transmission Date: 20170428
  Serious: Yes (Life-Threatening, Other)
  Sender: FDA-Public Use
  Company Number: None

PATIENT
  Age: 20 Year
  Sex: Male
  Weight: 90 kg

DRUGS (3)
  1. NORCO [Suspect]
     Active Substance: ACETAMINOPHEN\HYDROCODONE BITARTRATE
     Indication: BACK PAIN
     Dosage: ?          QUANTITY:12 TABLET(S);?
     Route: 048
     Dates: start: 20160213, end: 20160214
  2. NORCO [Suspect]
     Active Substance: ACETAMINOPHEN\HYDROCODONE BITARTRATE
     Indication: ADDISON^S DISEASE
     Dosage: ?          QUANTITY:12 TABLET(S);?
     Route: 048
     Dates: start: 20160213, end: 20160214
  3. TORADOL [Suspect]
     Active Substance: KETOROLAC TROMETHAMINE
     Indication: ADDISON^S DISEASE
     Route: 030

REACTIONS (2)
  - Asthenia [None]
  - Liver injury [None]

NARRATIVE: CASE EVENT DATE: 20160214
